FAERS Safety Report 8871385 (Version 1)
Quarter: 2012Q4

REPORT INFORMATION
  Report Type: 
  Country: DE (occurrence: DE)
  Receive Date: 20121029
  Receipt Date: 20121029
  Transmission Date: 20130627
  Serious: Yes (Other)
  Sender: FDA-Public Use
  Company Number: DE-BRISTOL-MYERS SQUIBB COMPANY-17048232

PATIENT
  Sex: Male
  Weight: 85 kg

DRUGS (5)
  1. PRAVASTATIN SODIUM [Suspect]
     Route: 048
     Dates: start: 200506
  2. TREDAPTIVE [Suspect]
     Route: 048
     Dates: start: 201007, end: 201010
  3. SIMVASTATIN [Suspect]
     Dosage: 1 DF: 10-20mg
     Route: 048
     Dates: start: 201106, end: 201210
  4. FLUVASTATIN [Suspect]
     Route: 048
     Dates: start: 200508
  5. EZETROL [Suspect]
     Indication: HYPERLIPIDAEMIA
     Route: 048
     Dates: start: 200608

REACTIONS (6)
  - Myalgia [Recovered/Resolved]
  - Nausea [Recovered/Resolved]
  - Vomiting [Recovered/Resolved]
  - Rash [Recovered/Resolved]
  - Pruritus [Recovered/Resolved]
  - Incontinence [Recovered/Resolved]
